FAERS Safety Report 7209874-2 (Version None)
Quarter: 2011Q1

REPORT INFORMATION
  Report Type: 
  Country: None (occurrence: None)
  Receive Date: 20110104
  Receipt Date: 20101227
  Transmission Date: 20110831
  Serious: Yes (Other)
  Sender: FDA-Public Use
  Company Number: JP-BRISTOL-MYERS SQUIBB COMPANY-15469554

PATIENT
  Age: 60 Year
  Sex: Male

DRUGS (2)
  1. ELPLAT [Suspect]
     Indication: COLON CANCER
     Dosage: ELPLAT(OXALIPLATIN)INTRAVENOUS INFUSION
     Route: 042
     Dates: start: 20101102
  2. ERBITUX [Suspect]
     Indication: COLON CANCER
     Route: 042
     Dates: start: 20101102

REACTIONS (1)
  - ILEUS [None]
